FAERS Safety Report 7941867-X (Version None)
Quarter: 2011Q4

REPORT INFORMATION
  Report Type: 
  Country: None (occurrence: None)
  Receive Date: 20111122
  Receipt Date: 20111122
  Transmission Date: 20120403
  Serious: No
  Sender: FDA-Public Use
  Company Number: None

PATIENT
  Sex: Female

DRUGS (2)
  1. RIBAPAK 600/400MG TABLET [Concomitant]
  2. PEGASYS [Suspect]
     Dosage: 180 MCG/0.5ML PO
     Route: 048

REACTIONS (1)
  - DIZZINESS [None]
